FAERS Safety Report 22277146 (Version 1)
Quarter: 2023Q2

REPORT INFORMATION
  Report Type: Other
  Country: DE (occurrence: DE)
  Receive Date: 20230503
  Receipt Date: 20230503
  Transmission Date: 20230721
  Serious: Yes (Other)
  Sender: FDA-Public Use
  Company Number: DE-CELLTRION INC.-2023DE008761

PATIENT

DRUGS (1)
  1. RITUXIMAB [Suspect]
     Active Substance: RITUXIMAB
     Indication: Chronic inflammatory demyelinating polyradiculoneuropathy
     Dosage: (ADDITIONAL INFORMATION ON DRUG (CODED): OFF LABEL USE)

REACTIONS (3)
  - COVID-19 [Unknown]
  - SARS-CoV-2 test positive [Unknown]
  - Off label use [Unknown]
